FAERS Safety Report 8499361-6 (Version None)
Quarter: 2012Q3

REPORT INFORMATION
  Report Type: 
  Country: None (occurrence: None)
  Receive Date: 20120710
  Receipt Date: 20120628
  Transmission Date: 20120928
  Serious: No
  Sender: FDA-Public Use
  Company Number: JP-JNJFOC-20120700475

PATIENT

DRUGS (1)
  1. FENTANYL-100 [Suspect]
     Indication: POSTOPERATIVE ANALGESIA
     Route: 062

REACTIONS (3)
  - OFF LABEL USE [None]
  - DRUG INTOLERANCE [None]
  - DRUG PRESCRIBING ERROR [None]
